FAERS Safety Report 22118611 (Version 1)
Quarter: 2023Q1

REPORT INFORMATION
  Report Type: Spontaneous
  Country: GB (occurrence: GB)
  Receive Date: 20230321
  Receipt Date: 20230321
  Transmission Date: 20230418
  Serious: Yes (Disabling, Other)
  Sender: FDA-Public Use
  Company Number: GB-MHRA-MED-202303132111138650-KBMGD

PATIENT
  Age: 38 Year
  Sex: Female
  Weight: 60 kg

DRUGS (1)
  1. MIRTAZAPINE [Suspect]
     Active Substance: MIRTAZAPINE
     Indication: Depression
     Dosage: 1.65 AND STILL HAVING WITHDRAWAL IN FACT WORSE AT LOWER DOSES
     Route: 065
     Dates: start: 20210822

REACTIONS (1)
  - Antidepressant discontinuation syndrome [Not Recovered/Not Resolved]

NARRATIVE: CASE EVENT DATE: 20211228
